FAERS Safety Report 5487344-X (Version None)
Quarter: 2007Q4

REPORT INFORMATION
  Report Type: 
  Country: None (occurrence: None)
  Receive Date: 20071016
  Receipt Date: 20071003
  Transmission Date: 20080405
  Serious: Yes (Life-Threatening, Hospitalization, Other)
  Sender: FDA-Public Use
  Company Number: BG-PFIZER INC-2007084333

PATIENT
  Age: 32 Year
  Sex: Male

DRUGS (2)
  1. SALAZOPRIN [Suspect]
     Indication: INFLAMMATORY BOWEL DISEASE
     Dosage: DAILY DOSE:1500MG
  2. OMEPRAZOLE [Suspect]
     Indication: INFLAMMATORY BOWEL DISEASE
     Dosage: DAILY DOSE:20MG
     Dates: start: 20050620

REACTIONS (13)
  - BLISTER [None]
  - CONJUNCTIVAL HYPERAEMIA [None]
  - EOSINOPHILIA [None]
  - EYE DISCHARGE [None]
  - HEPATIC ENZYME INCREASED [None]
  - HYPOTHYROIDISM [None]
  - ILL-DEFINED DISORDER [None]
  - MADAROSIS [None]
  - NAIL DISORDER [None]
  - PYREXIA [None]
  - RASH MACULO-PAPULAR [None]
  - SKIN EROSION [None]
  - TOXIC EPIDERMAL NECROLYSIS [None]
